FAERS Safety Report 8872916 (Version 4)
Quarter: 2012Q4

REPORT INFORMATION
  Report Type: 
  Country: IE (occurrence: IE)
  Receive Date: 20121030
  Receipt Date: 20121126
  Transmission Date: 20130627
  Serious: Yes (Other)
  Sender: FDA-Public Use
  Company Number: IE-ROCHE-1149730

PATIENT
  Age: 36 None
  Sex: Female
  Weight: 57.3 kg

DRUGS (2)
  1. HERCEPTIN [Suspect]
     Indication: BREAST CANCER METASTATIC
     Route: 042
     Dates: start: 2009
  2. HERCEPTIN [Suspect]
     Route: 042
     Dates: start: 20120323, end: 20120323

REACTIONS (2)
  - Infusion related reaction [Recovered/Resolved]
  - Breast cancer recurrent [Unknown]
